FAERS Safety Report 6869994-9 (Version None)
Quarter: 2010Q3

REPORT INFORMATION
  Report Type: 
  Country: None (occurrence: None)
  Receive Date: 20100722
  Receipt Date: 20100714
  Transmission Date: 20110219
  Serious: Yes (Other)
  Sender: FDA-Public Use
  Company Number: AU-PFIZER INC-2010088082

PATIENT
  Sex: Female

DRUGS (4)
  1. CHAMPIX [Suspect]
     Dosage: 0.5 MG, UNK
     Dates: start: 20100712
  2. METHOTREXATE SODIUM [Suspect]
     Dosage: 10 MG, WEEKLY
  3. ETANERCEPT [Concomitant]
     Dosage: 50 MG, WEEKLY
  4. FOLIC ACID [Concomitant]
     Dosage: 2 MG, 1X/DAY

REACTIONS (2)
  - ANAPHYLACTIC REACTION [None]
  - MYOCARDIAL INFARCTION [None]
